FAERS Safety Report 24718271 (Version 1)
Quarter: 2024Q4

REPORT INFORMATION
  Report Type: Spontaneous
  Country: BG (occurrence: BG)
  Receive Date: 20241210
  Receipt Date: 20241210
  Transmission Date: 20250115
  Serious: Yes (Other)
  Sender: SCIEGEN PHARMACEUTICALS INC
  Company Number: BG-SCIEGENP-2024SCLIT00434

PATIENT
  Age: 61 Year
  Sex: Male

DRUGS (3)
  1. METFORMIN HYDROCHLORIDE [Suspect]
     Active Substance: METFORMIN HYDROCHLORIDE
     Indication: Type 2 diabetes mellitus
     Dosage: 2015-2017
     Route: 065
     Dates: start: 2015, end: 2017
  2. DAPAGLIFLOZIN\METFORMIN HYDROCHLORIDE [Suspect]
     Active Substance: DAPAGLIFLOZIN\METFORMIN HYDROCHLORIDE
     Indication: Diabetes mellitus
     Dosage: 5/1000 MG (2017-2021)
     Route: 065
     Dates: start: 2017, end: 2021
  3. GLIMEPIRIDE [Concomitant]
     Active Substance: GLIMEPIRIDE
     Indication: Type 2 diabetes mellitus
     Dosage: IN COMBINATION WITH METFORMIN HYDROCHLORIDE 1000 MG/DAY (2021-22
     Route: 065

REACTIONS (1)
  - Basal cell carcinoma [Unknown]
